FAERS Safety Report 12586610 (Version 1)
Quarter: 2016Q3

REPORT INFORMATION
  Report Type: Spontaneous
  Country: US (occurrence: None)
  Receive Date: 20160722
  Receipt Date: 20160722
  Transmission Date: 20161109
  Serious: Yes (Other)
  Sender: FDA-Public Use
  Company Number: None

PATIENT
  Age: 74 Year
  Sex: Female
  Weight: 63.5 kg

DRUGS (1)
  1. PREMPRO [Suspect]
     Active Substance: ESTROGENS, CONJUGATED\MEDROXYPROGESTERONE ACETATE
     Indication: MENOPAUSAL SYMPTOMS
     Route: 048
     Dates: start: 20160624, end: 201607

REACTIONS (9)
  - Asthenia [None]
  - Headache [None]
  - Oropharyngeal pain [None]
  - Influenza like illness [None]
  - Sinusitis [None]
  - Lower respiratory tract infection [None]
  - Pyrexia [None]
  - Haemoptysis [None]
  - Productive cough [None]

NARRATIVE: CASE EVENT DATE: 20160624
